FAERS Safety Report 5169656-2 (Version None)
Quarter: 2006Q4

REPORT INFORMATION
  Report Type: 
  Country: None (occurrence: None)
  Receive Date: 20060918
  Receipt Date: 20060616
  Transmission Date: 20070319
  Serious: Yes (Hospitalization, Other)
  Sender: FDA-Public Use
  Company Number: US-JNJFOC-20060604126

PATIENT
  Age: 38 Year
  Sex: Female

DRUGS (2)
  1. ORTHO EVRA [Suspect]
     Indication: MENORRHAGIA
     Dosage: TRANSDERMAL
     Route: 062
     Dates: start: 20040201, end: 20040301
  2. ORAL CONTRACEPTIVE (ORAL CONTRACEPTIVE NOS) [Suspect]
     Indication: VAGINAL HAEMORRHAGE
     Dosage: ORAL
     Route: 048
     Dates: start: 20040301

REACTIONS (3)
  - MYOCARDIAL INFARCTION [None]
  - THROMBOSIS [None]
  - VAGINAL HAEMORRHAGE [None]
